FAERS Safety Report 18257769 (Version 1)
Quarter: 2020Q3

REPORT INFORMATION
  Report Type: Spontaneous
  Country: CN (occurrence: CN)
  Receive Date: 20200911
  Receipt Date: 20200911
  Transmission Date: 20201103
  Serious: Yes (Other)
  Sender: FDA-Public Use
  Company Number: CN-PFIZER INC-2020349880

PATIENT
  Age: 44 Year
  Sex: Male
  Weight: 73.7 kg

DRUGS (4)
  1. CEFOPERAZONE SODIUM [Suspect]
     Active Substance: CEFOPERAZONE SODIUM
     Indication: ANTIBIOTIC THERAPY
     Dosage: 4 G, 2X/DAY
     Route: 041
     Dates: start: 20200902, end: 20200902
  2. METRONIDAZOLE AND SODIUM CHLORIDE [Concomitant]
     Indication: INFLAMMATION
     Dosage: 0.5 G, 1X/DAY
     Route: 041
     Dates: start: 20200902, end: 20200902
  3. CEFOPERAZONE SODIUM [Suspect]
     Active Substance: CEFOPERAZONE SODIUM
     Indication: INFLAMMATION
  4. METRONIDAZOLE AND SODIUM CHLORIDE [Concomitant]
     Indication: ANTIBIOTIC THERAPY

REACTIONS (6)
  - Oxygen saturation decreased [Recovering/Resolving]
  - Infusion related reaction [Recovering/Resolving]
  - Heart rate increased [Recovering/Resolving]
  - Chills [Recovering/Resolving]
  - Respiratory rate increased [Recovering/Resolving]
  - Pyrexia [Recovering/Resolving]

NARRATIVE: CASE EVENT DATE: 20200902
